FAERS Safety Report 9138110 (Version 1)
Quarter: 2013Q1

REPORT INFORMATION
  Report Type: Spontaneous
  Country: US (occurrence: US)
  Receive Date: 20130304
  Receipt Date: 20130304
  Transmission Date: 20140127
  Serious: No
  Sender: FDA-Public Use
  Company Number: US-009507513-1302USA013019

PATIENT
  Sex: Male

DRUGS (2)
  1. ASMANEX TWISTHALER [Suspect]
     Indication: COUGH
     Dosage: 2 PUFFS, BID
     Route: 055
     Dates: start: 20130223
  2. ASMANEX TWISTHALER [Suspect]
     Indication: UPPER-AIRWAY COUGH SYNDROME

REACTIONS (3)
  - Drug ineffective for unapproved indication [Unknown]
  - Off label use [Unknown]
  - Product quality issue [Unknown]
